FAERS Safety Report 5023839-0 (Version None)
Quarter: 2006Q2

REPORT INFORMATION
  Report Type: 
  Country: None (occurrence: None)
  Receive Date: 20060606
  Receipt Date: 20060531
  Transmission Date: 20061013
  Serious: Yes (Death)
  Sender: FDA-Public Use
  Company Number: HQWYE712502JUN06

PATIENT

DRUGS (1)
  1. MYLOTARG [Suspect]
     Indication: ACUTE MYELOID LEUKAEMIA
     Dosage: ON UNSPECIFIED DOSE ON AN UNSPECIFIED DATE IN 2006, INTRAVENOUS
     Route: 042

REACTIONS (1)
  - INFUSION RELATED REACTION [None]
